FAERS Safety Report 7237091-9 (Version None)
Quarter: 2011Q1

REPORT INFORMATION
  Report Type: 
  Country: None (occurrence: None)
  Receive Date: 20110111
  Receipt Date: 20101222
  Transmission Date: 20110831
  Serious: Yes (Hospitalization)
  Sender: FDA-Public Use
  Company Number: MSER20100036

PATIENT
  Age: 32 Year
  Sex: Male

DRUGS (4)
  1. OXYCODONE AND ACETAMINOPHEN [Suspect]
     Indication: PAIN
     Dosage: ORAL
     Route: 048
  2. MORPHINE SULFATE [Suspect]
     Indication: PAIN
     Dosage: 32MG,1IN3HR,INTRAVENOUS,64MG,1IN3HR,INTRAVENOUS,34MG,1IN4HR,INTRAVENOUS
     Route: 042
  3. HYDROCODONE BITARTRATE + ACETAMINOPHEN [Suspect]
     Indication: PAIN
     Dosage: 2 TABLETS, PRN, ORAL
     Route: 048
  4. HYDROMORPHONE (HYDROMORPHONE) (6 MILLIGRAM) [Suspect]
     Indication: PAIN
     Dosage: 48 MG 1 IN 3 HR,

REACTIONS (3)
  - REFUSAL OF TREATMENT BY PATIENT [None]
  - HYPERAESTHESIA [None]
  - CONDITION AGGRAVATED [None]
